FAERS Safety Report 22938401 (Version 3)
Quarter: 2023Q4

REPORT INFORMATION
  Report Type: Spontaneous
  Country: FR (occurrence: FR)
  Receive Date: 20230913
  Receipt Date: 20231113
  Transmission Date: 20240110
  Serious: Yes (Hospitalization, Other)
  Sender: FDA-Public Use
  Company Number: FR-AMGEN-FRASP2023156756

PATIENT
  Age: 61 Year
  Sex: Male

DRUGS (14)
  1. REPATHA [Suspect]
     Active Substance: EVOLOCUMAB
     Indication: Blood cholesterol abnormal
     Dosage: UNK
     Route: 065
     Dates: start: 202204
  2. REPATHA [Suspect]
     Active Substance: EVOLOCUMAB
     Indication: Hypercholesterolaemia
     Dosage: 140 MILLIGRAM, QMO
     Route: 065
  3. ELIQUIS [Concomitant]
     Active Substance: APIXABAN
  4. TRULICITY [Concomitant]
     Active Substance: DULAGLUTIDE
  5. APIDRA [Concomitant]
     Active Substance: INSULIN GLULISINE
  6. BISOPROLOL [Concomitant]
     Active Substance: BISOPROLOL\BISOPROLOL FUMARATE
  7. VALSARTAN [Concomitant]
     Active Substance: VALSARTAN
  8. FUROSEMIDE [Concomitant]
     Active Substance: FUROSEMIDE
  9. POTASSIUM CHLORIDE [Concomitant]
     Active Substance: POTASSIUM CHLORIDE
  10. Lumirelax [Concomitant]
  11. ACETAMINOPHEN\CAFFEINE [Concomitant]
     Active Substance: ACETAMINOPHEN\CAFFEINE
  12. AMLODIPINE [Concomitant]
     Active Substance: AMLODIPINE BESYLATE
  13. ALPRAZOLAM [Concomitant]
     Active Substance: ALPRAZOLAM
  14. LANSOPRAZOLE [Concomitant]
     Active Substance: LANSOPRAZOLE

REACTIONS (9)
  - Bone neoplasm [Unknown]
  - Diabetes mellitus inadequate control [Not Recovered/Not Resolved]
  - Aortic aneurysm [Unknown]
  - Neutropenia [Unknown]
  - Cough [Unknown]
  - Lymphopenia [Not Recovered/Not Resolved]
  - Pituitary enlargement [Unknown]
  - Blood pressure abnormal [Unknown]
  - White blood cell count decreased [Recovering/Resolving]

NARRATIVE: CASE EVENT DATE: 20220101
